FAERS Safety Report 9710672 (Version 1)
Quarter: 2013Q4

REPORT INFORMATION
  Report Type: Spontaneous
  Country: US (occurrence: US)
  Receive Date: 20131126
  Receipt Date: 20131126
  Transmission Date: 20140711
  Serious: No
  Sender: FDA-Public Use
  Company Number: US-BRISTOL-MYERS SQUIBB COMPANY-19009935

PATIENT
  Age: 52 Year
  Sex: Female
  Weight: 126.98 kg

DRUGS (3)
  1. BYDUREON [Suspect]
     Indication: TYPE 2 DIABETES MELLITUS
  2. METFORMIN [Concomitant]
     Indication: DIABETES MELLITUS
     Dosage: METFORMIN EXTENDED RELEASE
  3. GLIMEPIRIDE [Concomitant]

REACTIONS (7)
  - Sinusitis [Recovering/Resolving]
  - Bronchitis [Recovering/Resolving]
  - Injection site nodule [Unknown]
  - Nausea [Not Recovered/Not Resolved]
  - Vomiting [Not Recovered/Not Resolved]
  - Dyspepsia [Not Recovered/Not Resolved]
  - Weight decreased [Unknown]
